FAERS Safety Report 21632566 (Version 1)
Quarter: 2022Q4

REPORT INFORMATION
  Report Type: Spontaneous
  Country: CO (occurrence: None)
  Receive Date: 20221123
  Receipt Date: 20221123
  Transmission Date: 20230113
  Serious: Yes (Other)
  Sender: FDA-Public Use
  Company Number: 2022A382133

PATIENT

DRUGS (5)
  1. OSIMERTINIB [Suspect]
     Active Substance: OSIMERTINIB
     Indication: Lung cancer metastatic
     Route: 048
  2. PACLITAXEL [Concomitant]
     Active Substance: PACLITAXEL
  3. CARBO [Concomitant]
  4. BEVA [Concomitant]
  5. ATEZO [Concomitant]

REACTIONS (1)
  - Malignant neoplasm progression [Unknown]
